FAERS Safety Report 9549646 (Version 3)
Quarter: 2013Q4

REPORT INFORMATION
  Report Type: Spontaneous
  Country: BE (occurrence: BE)
  Receive Date: 20130924
  Receipt Date: 20131029
  Transmission Date: 20140711
  Serious: Yes (Hospitalization, Other)
  Sender: FDA-Public Use
  Company Number: BE-ELI_LILLY_AND_COMPANY-BE201306008757

PATIENT
  Age: 64 Year
  Sex: Male

DRUGS (13)
  1. ZYPADHERA [Suspect]
     Indication: PRODUCT USED FOR UNKNOWN INDICATION
     Dosage: UNK, UNKNOWN
     Route: 030
     Dates: start: 20110504, end: 20130901
  2. ASAFLOW [Concomitant]
     Dosage: 80 MG, QD
  3. ASAFLOW [Concomitant]
     Dosage: 80 MG, EVERY 8 HRS
  4. MANIPREX [Concomitant]
     Dosage: 500 MG, BID
  5. MANIPREX [Concomitant]
     Dosage: 500 MG, EVERY 8 TO 17H
  6. RIVOTRIL [Concomitant]
     Dosage: 0.5 MG, OTHER
  7. TRAZODONE [Concomitant]
     Dosage: 100 MG, EVERY 20 HOURS
  8. NOZINAN [Concomitant]
     Dosage: 100 MG, QD
  9. L-THYROXINE [Concomitant]
     Dosage: 50 DF, EVERY 8 HRS
  10. ZOCOR [Concomitant]
     Dosage: 20 MG, 17H
  11. DAFLON [Concomitant]
     Dosage: 500 MG, EVERY 8 HRS
  12. VENORUTON [Concomitant]
  13. MAGNESPASMYL [Concomitant]
     Dosage: 1 DF, QD

REACTIONS (12)
  - B-cell lymphoma [Unknown]
  - Muscle rigidity [Recovered/Resolved]
  - Hypokinesia [Recovered/Resolved]
  - Loss of consciousness [Recovered/Resolved]
  - Sedation [Recovered/Resolved]
  - Asthenia [Recovered/Resolved]
  - Dysarthria [Recovered/Resolved]
  - Agitation [Recovered/Resolved]
  - Facial asymmetry [Recovered/Resolved]
  - Splenomegaly [Unknown]
  - Tendonitis [Unknown]
  - Arteriosclerosis [Unknown]
